FAERS Safety Report 11706853 (Version 1)
Quarter: 2015Q4

REPORT INFORMATION
  Report Type: Spontaneous
  Country: US (occurrence: US)
  Receive Date: 20151104
  Receipt Date: 20151104
  Transmission Date: 20160304
  Serious: No
  Sender: FDA-Public Use
  Company Number: US-ELI_LILLY_AND_COMPANY-US201102003272

PATIENT
  Sex: Female

DRUGS (1)
  1. FORTEO [Suspect]
     Active Substance: TERIPARATIDE
     Indication: OSTEOPOROSIS
     Dosage: 20 UG, UNKNOWN

REACTIONS (11)
  - Discomfort [Unknown]
  - Neck pain [Unknown]
  - Feeling abnormal [Unknown]
  - Tooth disorder [Unknown]
  - Insomnia [Unknown]
  - Diarrhoea [Unknown]
  - Arthralgia [Unknown]
  - Anxiety [Unknown]
  - Headache [Unknown]
  - Musculoskeletal pain [Unknown]
  - Depression [Unknown]
